FAERS Safety Report 4293904-4 (Version None)
Quarter: 2004Q1

REPORT INFORMATION
  Report Type: 
  Country: None (occurrence: None)
  Receive Date: 20040212
  Receipt Date: 20040212
  Transmission Date: 20041129
  Serious: Yes (Death)
  Sender: FDA-Public Use
  Company Number: None

PATIENT
  Age: 80 Year
  Sex: Male
  Weight: 113.3993 kg

DRUGS (9)
  1. CORDARONE [Suspect]
     Indication: ATRIAL FIBRILLATION
     Dosage: TWICE DAILY PILLS [8/1997 TO DEATH]
     Dates: start: 19970801, end: 20031231
  2. POTASSIUM [Concomitant]
  3. LIPITOR [Concomitant]
  4. PRILOSEC [Concomitant]
  5. ASPIRIN [Concomitant]
  6. CORDARONE [Concomitant]
  7. BUMETONIDE [Concomitant]
  8. MULTIVITAMIN [Concomitant]
  9. COUMADIN [Concomitant]

REACTIONS (4)
  - DRUG TOXICITY [None]
  - DYSPNOEA [None]
  - LUNG DISORDER [None]
  - PULMONARY FIBROSIS [None]
